FAERS Safety Report 4705953-X (Version None)
Quarter: 2005Q2

REPORT INFORMATION
  Report Type: 
  Country: None (occurrence: None)
  Receive Date: 20050628
  Receipt Date: 20041006
  Transmission Date: 20051028
  Serious: Yes (Other)
  Sender: FDA-Public Use
  Company Number: VISP-PR-0410S-0361

PATIENT

DRUGS (1)
  1. VISIPAQUE [Suspect]
     Dosage: SINGLE DOSE, I.A.
     Route: 013
     Dates: start: 20040909, end: 20040909

REACTIONS (1)
  - ANAPHYLACTOID SHOCK [None]
